FAERS Safety Report 4616538-8 (Version None)
Quarter: 2005Q2

REPORT INFORMATION
  Report Type: 
  Country: None (occurrence: None)
  Receive Date: 20050311
  Receipt Date: 20050204
  Transmission Date: 20051028
  Serious: No
  Sender: FDA-Public Use
  Company Number: 2005-00213

PATIENT
  Age: 58 Year
  Sex: Female
  Weight: 57.6 kg

DRUGS (13)
  1. VELCADE [Suspect]
     Indication: MULTIPLE MYELOMA
     Dosage: 1.00 MG, 2/WEEK, INTRAVENOUS
     Route: 042
     Dates: start: 20040601
  2. THALIDOMIDE(THALIDOMIDE) [Suspect]
     Indication: MULTIPLE MYELOMA
     Dosage: 100.00 MG, QD, ORAL
     Route: 048
     Dates: start: 20040601
  3. ACYCLOVIR [Concomitant]
  4. FOLIC ACID [Concomitant]
  5. IRON (IRON) [Concomitant]
  6. CALCIUM (CALCIUM) [Concomitant]
  7. MULTIVITAMINS (ERGOCALCIFEROL, PANTHENOL, NICOTINAMIDE, RIBOFLAVIN, TH [Concomitant]
  8. FISH OIL (FISH OIL) [Concomitant]
  9. DAPSONE [Concomitant]
  10. AREDIA [Concomitant]
  11. DEXAMETHASONE [Concomitant]
  12. DIFLUCAN [Concomitant]
  13. RANITIDINE [Concomitant]

REACTIONS (5)
  - FATIGUE [None]
  - FEELING ABNORMAL [None]
  - HYPOAESTHESIA [None]
  - OEDEMA PERIPHERAL [None]
  - PAIN [None]
